FAERS Safety Report 8191483-2 (Version None)
Quarter: 2012Q1

REPORT INFORMATION
  Report Type: 
  Country: None (occurrence: None)
  Receive Date: 20120202
  Receipt Date: 20111108
  Transmission Date: 20120608
  Serious: No
  Sender: FDA-Public Use
  Company Number: 045069

PATIENT
  Sex: Female

DRUGS (1)
  1. LACOSAMIDE [Suspect]
     Dosage: 150 MG AND 200 MG AM AND PM

REACTIONS (3)
  - CRYING [None]
  - IRRITABILITY [None]
  - URTICARIA [None]
